FAERS Safety Report 10296788 (Version 1)
Quarter: 2014Q3

REPORT INFORMATION
  Report Type: Spontaneous
  Country: US (occurrence: None)
  Receive Date: 20140708
  Receipt Date: 20140708
  Transmission Date: 20150326
  Serious: No
  Sender: FDA-Public Use
  Company Number: None

PATIENT
  Age: 76 Year
  Sex: Male
  Weight: 122.3 kg

DRUGS (2)
  1. ENOXAPARIN [Suspect]
     Active Substance: ENOXAPARIN
     Indication: ATRIAL FIBRILLATION
     Dosage: ML SQ
     Route: 058
     Dates: start: 20140116, end: 20140124
  2. ENOXAPARIN [Suspect]
     Active Substance: ENOXAPARIN
     Dosage: ML SQ
     Route: 058
     Dates: start: 20140116, end: 20140124

REACTIONS (4)
  - Injection site laceration [None]
  - Drug administered at inappropriate site [None]
  - Injection site vesicles [None]
  - Gait disturbance [None]

NARRATIVE: CASE EVENT DATE: 20140116
